FAERS Safety Report 4479158-4 (Version None)
Quarter: 2004Q3

REPORT INFORMATION
  Report Type: 
  Country: None (occurrence: None)
  Receive Date: 20040923
  Receipt Date: 20040601
  Transmission Date: 20050211
  Serious: No
  Sender: FDA-Public Use
  Company Number: USA040668989

PATIENT
  Age: 70 Year
  Sex: Female
  Weight: 55 kg

DRUGS (5)
  1. FORTEO [Suspect]
     Indication: OSTEOPOROSIS
     Dates: start: 20040224
  2. ESTROGEN NOS [Concomitant]
  3. PROVERA [Concomitant]
  4. NEXIUM [Concomitant]
  5. MULTIVITAMIN [Concomitant]

REACTIONS (4)
  - ASTHENIA [None]
  - BIOPSY VAGINA [None]
  - DIZZINESS [None]
  - VAGINAL HAEMORRHAGE [None]
